FAERS Safety Report 6401065-8 (Version None)
Quarter: 2009Q4

REPORT INFORMATION
  Report Type: 
  Country: None (occurrence: None)
  Receive Date: 20091015
  Receipt Date: 20091005
  Transmission Date: 20100525
  Serious: Yes (Other)
  Sender: FDA-Public Use
  Company Number: US-JNJFOC-20090804059

PATIENT
  Sex: Female
  Weight: 52.6 kg

DRUGS (6)
  1. INFLIXIMAB [Suspect]
  2. INFLIXIMAB [Suspect]
     Indication: INFLAMMATORY BOWEL DISEASE
  3. METHOTREXATE [Suspect]
     Indication: INFLAMMATORY BOWEL DISEASE
  4. ANTIHISTAMINES NOS [Concomitant]
     Indication: PREMEDICATION
  5. ACETAMINOPHEN [Concomitant]
     Indication: PREMEDICATION
  6. STEROIDS NOS [Concomitant]
     Indication: PREMEDICATION

REACTIONS (1)
  - GENITAL HERPES [None]
